FAERS Safety Report 8240167-0 (Version None)
Quarter: 2012Q1

REPORT INFORMATION
  Report Type: 
  Country: None (occurrence: None)
  Receive Date: 20120328
  Receipt Date: 20120321
  Transmission Date: 20120608
  Serious: Yes (Other)
  Sender: FDA-Public Use
  Company Number: ES-PFIZER INC-2012074838

PATIENT
  Sex: Female

DRUGS (1)
  1. MISOPROSTOL [Suspect]
     Dosage: 4000 UG, UNK
     Route: 067

REACTIONS (9)
  - OVERDOSE [None]
  - HYPERTHERMIA [None]
  - UTERINE CONTRACTIONS ABNORMAL [None]
  - CHORIOAMNIONITIS [None]
  - CONFUSIONAL STATE [None]
  - DISORIENTATION [None]
  - ABDOMINAL PAIN [None]
  - HYPOTENSION [None]
  - TOXICITY TO VARIOUS AGENTS [None]
